FAERS Safety Report 12606614 (Version 1)
Quarter: 2016Q3

REPORT INFORMATION
  Report Type: Report from Study
  Country: CN (occurrence: CN)
  Receive Date: 20160729
  Receipt Date: 20160729
  Transmission Date: 20161109
  Serious: Yes (Life-Threatening, Hospitalization)
  Sender: FDA-Public Use
  Company Number: CN-PURDUE-GBR-2014-0020633

PATIENT
  Age: 65 Year
  Sex: Male
  Weight: 60 kg

DRUGS (10)
  1. OXYCONTIN [Suspect]
     Active Substance: OXYCODONE HYDROCHLORIDE
     Dosage: 10 MG, DAILY (DIVIDED Q12H)
     Route: 048
     Dates: start: 20140809, end: 20140811
  2. OXYCONTIN [Suspect]
     Active Substance: OXYCODONE HYDROCHLORIDE
     Dosage: 5 MG, DAILY (DIVIDED Q12H)
     Route: 048
     Dates: start: 20140808, end: 20140808
  3. VITAMIN B [Concomitant]
     Active Substance: VITAMIN B
     Indication: POST HERPETIC NEURALGIA
     Dosage: UNK
     Route: 048
     Dates: start: 201407, end: 201410
  4. MECOBALAMIN [Concomitant]
     Active Substance: METHYLCOBALAMIN
     Indication: POST HERPETIC NEURALGIA
  5. NITRENDIPINE [Concomitant]
     Active Substance: NITRENDIPINE
     Indication: HYPERTENSION
     Dosage: 10 MG, DAILY
     Dates: start: 2009
  6. OXYCONTIN [Suspect]
     Active Substance: OXYCODONE HYDROCHLORIDE
     Dosage: 15 MG, DAILY (DIVIDED Q12H)
     Route: 048
     Dates: start: 20140812, end: 20140812
  7. SODIUM NITROPRUSSIDE [Concomitant]
     Active Substance: SODIUM NITROPRUSSIDE
     Indication: HYPERTENSION
     Dosage: 50 MG, UNK
     Route: 042
     Dates: start: 20140819
  8. MECOBALAMIN [Concomitant]
     Active Substance: METHYLCOBALAMIN
     Indication: NEURALGIA
     Dosage: 0.5 MG, UNK
     Route: 048
     Dates: start: 201401
  9. OXYCONTIN [Suspect]
     Active Substance: OXYCODONE HYDROCHLORIDE
     Indication: PAIN
     Dosage: 20 MG, DAILY (DIVIDED Q12H)
     Route: 048
     Dates: start: 20140813, end: 20140827
  10. GABAPENTIN. [Concomitant]
     Active Substance: GABAPENTIN
     Indication: POST HERPETIC NEURALGIA
     Dosage: 0.3 G, UNK
     Route: 048
     Dates: start: 201401, end: 20141024

REACTIONS (1)
  - Compression fracture [Recovered/Resolved]

NARRATIVE: CASE EVENT DATE: 20140818
